FAERS Safety Report 9906911 (Version 3)
Quarter: 2015Q3

REPORT INFORMATION
  Report Type: Spontaneous
  Country: US (occurrence: US)
  Receive Date: 20140218
  Receipt Date: 20150812
  Transmission Date: 20151125
  Serious: Yes (Hospitalization)
  Sender: FDA-Public Use
  Company Number: US-GILEAD-2012-0055951

PATIENT
  Age: 74 Year
  Sex: Female

DRUGS (2)
  1. LETAIRIS [Suspect]
     Active Substance: AMBRISENTAN
     Indication: PULMONARY HYPERTENSION
     Dosage: 5 MG, UNK
     Route: 048
     Dates: start: 20120220
  2. LETAIRIS [Suspect]
     Active Substance: AMBRISENTAN
     Indication: CARDIAC VALVE DISEASE

REACTIONS (3)
  - Peripheral swelling [Unknown]
  - Oedema [Unknown]
  - Red blood cell count decreased [Unknown]
